FAERS Safety Report 7686903-3 (Version None)
Quarter: 2011Q3

REPORT INFORMATION
  Report Type: 
  Country: None (occurrence: None)
  Receive Date: 20110816
  Receipt Date: 20110808
  Transmission Date: 20111222
  Serious: Yes (Hospitalization)
  Sender: FDA-Public Use
  Company Number: US-BAYER-201037243NA

PATIENT
  Age: 34 Year
  Sex: Female

DRUGS (10)
  1. YASMIN [Suspect]
     Indication: PREMENSTRUAL SYNDROME
     Dosage: UNK
     Dates: start: 20070401, end: 20080701
  2. DROSPIRENONE AND ETHINYL ESTRADIOL [Suspect]
     Indication: ACNE
     Dosage: UNK
     Dates: start: 20080801, end: 20090501
  3. DROSPIRENONE AND ETHINYL ESTRADIOL [Suspect]
     Indication: PREMENSTRUAL SYNDROME
  4. PROAMATINE [Concomitant]
     Dosage: 2.5 MG, TID
     Dates: start: 20071220
  5. ASTELIN [Concomitant]
     Dosage: UNK
     Dates: start: 20070815
  6. ASPIR-81 [Concomitant]
     Dosage: UNK
     Dates: start: 20070721
  7. SINGULAIR [Concomitant]
     Dosage: UNK
     Dates: start: 20070721
  8. YASMIN [Suspect]
     Indication: ACNE
     Dosage: UNK
     Dates: start: 20030801, end: 20060101
  9. VITAMIN D [Concomitant]
     Dosage: UNK
     Dates: start: 20071220
  10. ALLEGRA [Concomitant]
     Dosage: UNK
     Dates: start: 20070721

REACTIONS (8)
  - ABNORMAL LOSS OF WEIGHT [None]
  - ABDOMINAL DISTENSION [None]
  - CHOLELITHIASIS [None]
  - CONSTIPATION [None]
  - FLATULENCE [None]
  - PAIN [None]
  - ABDOMINAL PAIN [None]
  - SUTURE RELATED COMPLICATION [None]
